FAERS Safety Report 13340358 (Version 2)
Quarter: 2019Q4

REPORT INFORMATION
  Report Type: Spontaneous
  Country: US (occurrence: US)
  Receive Date: 20170316
  Receipt Date: 20191209
  Transmission Date: 20200122
  Serious: Yes (Other)
  Sender: FDA-Public Use
  Company Number: US-UCBSA-2017009698

PATIENT
  Sex: Female
  Weight: 43 kg

DRUGS (2)
  1. VIMPAT [Suspect]
     Active Substance: LACOSAMIDE
     Indication: FOCAL DYSCOGNITIVE SEIZURES
     Dosage: 3 ML, 2X/DAY (BID) FOR 5 YEARS
  2. KEPPRA [Suspect]
     Active Substance: LEVETIRACETAM
     Indication: FOCAL DYSCOGNITIVE SEIZURES
     Dosage: 6 ML, 2X/DAY (BID) FOR 6 YEARS

REACTIONS (1)
  - Focal dyscognitive seizures [Recovered/Resolved]
